FAERS Safety Report 8428594-X (Version None)
Quarter: 2012Q2

REPORT INFORMATION
  Report Type: 
  Country: None (occurrence: None)
  Receive Date: 20120605
  Receipt Date: 20120522
  Transmission Date: 20120825
  Serious: Yes (Other)
  Sender: FDA-Public Use
  Company Number: 2012P1031139

PATIENT
  Age: 80 Year
  Sex: Female
  Weight: 67.1324 kg

DRUGS (6)
  1. FENTANYL [Suspect]
     Indication: FIBROMYALGIA
     Dosage: 1 PATCH;Q3D;TDER
     Route: 062
     Dates: start: 20120517, end: 20120522
  2. FENTANYL [Suspect]
     Indication: BACK PAIN
     Dosage: 1 PATCH;Q3D;TDER
     Route: 062
     Dates: start: 20120517, end: 20120522
  3. XANAX [Concomitant]
  4. NORVASC [Concomitant]
  5. PRILOSEC [Concomitant]
  6. AMITRIPTYLINE HCL [Concomitant]

REACTIONS (4)
  - DIZZINESS [None]
  - BALANCE DISORDER [None]
  - CONDITION AGGRAVATED [None]
  - EMPHYSEMA [None]
